FAERS Safety Report 21586778 (Version 1)
Quarter: 2022Q4

REPORT INFORMATION
  Report Type: Other
  Country: None (occurrence: CN)
  Receive Date: 20221113
  Receipt Date: 20221113
  Transmission Date: 20230113
  Serious: Yes (Life-Threatening)
  Sender: FDA-Public Use
  Company Number: CN-Jiangsu Hengrui Medicine Co., Ltd.-2134816

PATIENT
  Age: 67 Year
  Sex: Female
  Weight: 62 kg

DRUGS (1)
  1. IODIXANOL [Suspect]
     Active Substance: IODIXANOL
     Indication: Angiocardiogram
     Dates: start: 20221102, end: 20221102

REACTIONS (1)
  - Epiglottitis [Recovering/Resolving]

NARRATIVE: CASE EVENT DATE: 20221102
